FAERS Safety Report 8384273-9 (Version None)
Quarter: 2012Q2

REPORT INFORMATION
  Report Type: 
  Country: None (occurrence: None)
  Receive Date: 20120524
  Receipt Date: 20120516
  Transmission Date: 20120825
  Serious: Yes (Congenital Anomaly)
  Sender: FDA-Public Use
  Company Number: DE-TEVA-338778GER

PATIENT
  Age: 0 Year
  Sex: Male
  Weight: 2.57 kg

DRUGS (11)
  1. FRAGMIN P FORTE [Concomitant]
     Route: 064
     Dates: start: 20110208, end: 20110825
  2. PROGESTERONE [Concomitant]
     Route: 064
     Dates: start: 20110208
  3. CEFUROXIME [Concomitant]
     Route: 064
  4. CETIRIZINE HCL [Concomitant]
     Route: 064
     Dates: start: 20110825
  5. ARIXTRA [Concomitant]
     Route: 064
  6. MONUROL [Concomitant]
     Route: 064
  7. METOPROLOL [Suspect]
     Route: 064
     Dates: start: 20110208, end: 20110701
  8. BISOPROLOL FUMARATE [Suspect]
     Route: 064
     Dates: start: 20110702, end: 20110824
  9. PREDNISOLONE [Concomitant]
     Route: 064
     Dates: start: 20110827, end: 20110830
  10. FEMIBION SCHWANGERSCHAFT 1 [Concomitant]
     Route: 064
     Dates: start: 20110208, end: 20111103
  11. CLEXANE 60 [Concomitant]
     Route: 064
     Dates: end: 20111103

REACTIONS (3)
  - SMALL FOR DATES BABY [None]
  - HYPOSPADIAS [None]
  - HYDROCELE [None]
